FAERS Safety Report 6752957-1 (Version None)
Quarter: 2010Q2

REPORT INFORMATION
  Report Type: 
  Country: None (occurrence: None)
  Receive Date: 20100603
  Receipt Date: 20100428
  Transmission Date: 20101027
  Serious: Yes (Hospitalization, Other)
  Sender: FDA-Public Use
  Company Number: US-BAYER-201011984NA

PATIENT
  Age: 41 Year
  Sex: Female
  Weight: 141 kg

DRUGS (3)
  1. YAZ [Suspect]
     Indication: DRUG USE FOR UNKNOWN INDICATION
     Route: 048
     Dates: start: 20060101, end: 20080101
  2. YASMIN [Suspect]
     Indication: DRUG USE FOR UNKNOWN INDICATION
     Route: 048
  3. UNKNOWN STEROIDS [Concomitant]

REACTIONS (3)
  - GASTROINTESTINAL INJURY [None]
  - PULMONARY THROMBOSIS [None]
  - THROMBOSIS [None]
